FAERS Safety Report 20679497 (Version 1)
Quarter: 2022Q2

REPORT INFORMATION
  Report Type: Spontaneous
  Country: US (occurrence: US)
  Receive Date: 20220406
  Receipt Date: 20220406
  Transmission Date: 20220721
  Serious: Yes (Other)
  Sender: FDA-Public Use
  Company Number: US-SA-SAC20220404001261

PATIENT
  Age: 62 Year
  Sex: Male

DRUGS (1)
  1. ZANTAC [Suspect]
     Active Substance: RANITIDINE HYDROCHLORIDE
     Indication: Gastrooesophageal reflux disease
     Dosage: 150 MG, QD
     Dates: start: 199303, end: 200308

REACTIONS (4)
  - Hepatic cancer stage IV [Unknown]
  - Lung carcinoma cell type unspecified stage II [Unknown]
  - Lymphoma [Unknown]
  - Bone cancer [Unknown]

NARRATIVE: CASE EVENT DATE: 20150301
